FAERS Safety Report 7676898-0 (Version None)
Quarter: 2011Q3

REPORT INFORMATION
  Report Type: 
  Country: None (occurrence: None)
  Receive Date: 20110805
  Receipt Date: 20110722
  Transmission Date: 20111222
  Serious: Yes (Other)
  Sender: FDA-Public Use
  Company Number: 2011MA010021

PATIENT
  Sex: Male

DRUGS (3)
  1. MMR (NO PREF. NAME) [Suspect]
     Dosage: TPL
  2. FOLIC ACID [Suspect]
     Dosage: 400 MCG TPL
  3. FERROUS SUL ELX [Suspect]
     Indication: MATERNAL EXPOSURE DURING PREGNANCY
     Dosage: 200MG TPL

REACTIONS (5)
  - CARDIAC DISORDER [None]
  - MATERNAL DRUGS AFFECTING FOETUS [None]
  - PREMATURE BABY [None]
  - CARDIAC MURMUR [None]
  - NEONATAL RESPIRATORY DISTRESS SYNDROME [None]
